FAERS Safety Report 22114378 (Version 1)
Quarter: 2023Q1

REPORT INFORMATION
  Report Type: Spontaneous
  Country: US (occurrence: None)
  Receive Date: 20230317
  Receipt Date: 20230317
  Transmission Date: 20230418
  Serious: No
  Sender: FDA-Public Use
  Company Number: None

PATIENT
  Age: 55 Year
  Sex: Male

DRUGS (1)
  1. EPCLUSA [Suspect]
     Active Substance: SOFOSBUVIR\VELPATASVIR
     Indication: Hepatitis C
     Dosage: OTHER QUANTITY : 400MG/100MG TAB;?FREQUENCY : DAILY;?
     Route: 048
     Dates: start: 202301

REACTIONS (3)
  - Transplant rejection [None]
  - Traumatic lung injury [None]
  - Iatrogenic injury [None]

NARRATIVE: CASE EVENT DATE: 20230224
